FAERS Safety Report 20012264 (Version 2)
Quarter: 2022Q1

REPORT INFORMATION
  Report Type: Report from Study
  Country: US (occurrence: US)
  Receive Date: 20211029
  Receipt Date: 20220114
  Transmission Date: 20220423
  Serious: Yes (Hospitalization)
  Sender: FDA-Public Use
  Company Number: US-ABBVIE-21K-163-4138425-00

PATIENT
  Age: 62 Year
  Sex: Female

DRUGS (3)
  1. SKYRIZI [Suspect]
     Active Substance: RISANKIZUMAB-RZAA
     Indication: Psoriasis
     Route: 058
     Dates: start: 201909, end: 202107
  2. SKYRIZI [Suspect]
     Active Substance: RISANKIZUMAB-RZAA
     Route: 058
  3. OMEPRAZOLE [Concomitant]
     Active Substance: OMEPRAZOLE
     Indication: Product used for unknown indication

REACTIONS (12)
  - Cholecystitis infective [Unknown]
  - Weight decreased [Unknown]
  - Fungal infection [Unknown]
  - Cholelithiasis [Unknown]
  - Illness [Unknown]
  - Balance disorder [Unknown]
  - Arthritis [Unknown]
  - Joint injury [Unknown]
  - Cough [Unknown]
  - Sneezing [Unknown]
  - Blood glucose increased [Unknown]
  - Blood potassium decreased [Unknown]

NARRATIVE: CASE EVENT DATE: 20211001
